FAERS Safety Report 7258376-6 (Version None)
Quarter: 2011Q1

REPORT INFORMATION
  Report Type: 
  Country: None (occurrence: None)
  Receive Date: 20110129
  Receipt Date: 20100707
  Transmission Date: 20110831
  Serious: No
  Sender: FDA-Public Use
  Company Number: US-ABBOTT-10P-163-0656313-00

PATIENT
  Sex: Female

DRUGS (2)
  1. HUMIRA [Suspect]
     Dates: start: 20100501
  2. HUMIRA [Suspect]
     Indication: PSORIATIC ARTHROPATHY
     Route: 058

REACTIONS (7)
  - ROAD TRAFFIC ACCIDENT [None]
  - DIPLOPIA [None]
  - VISUAL FIELD DEFECT [None]
  - ABNORMAL BEHAVIOUR [None]
  - NAUSEA [None]
  - BLOOD PRESSURE FLUCTUATION [None]
  - MEMORY IMPAIRMENT [None]
